FAERS Safety Report 7463223-3 (Version None)
Quarter: 2011Q2

REPORT INFORMATION
  Report Type: 
  Country: None (occurrence: None)
  Receive Date: 20110506
  Receipt Date: 20110426
  Transmission Date: 20111010
  Serious: Yes (Death, Hospitalization, Other)
  Sender: FDA-Public Use
  Company Number: US-ROCHE-766890

PATIENT
  Sex: Female
  Weight: 62.1 kg

DRUGS (4)
  1. OXALIPLATIN [Concomitant]
     Indication: COLON CANCER
     Route: 065
     Dates: start: 20110314
  2. FLUOROURACIL [Concomitant]
     Indication: COLON CANCER
     Route: 065
     Dates: start: 20110314
  3. LEUCOVORIN CALCIUM [Concomitant]
     Indication: COLON CANCER
     Route: 065
     Dates: start: 20110314
  4. AVASTIN [Suspect]
     Dosage: DOSE: 300 MG
     Route: 042

REACTIONS (4)
  - VENTRICULAR FIBRILLATION [None]
  - CARDIOMYOPATHY [None]
  - MYOCARDIAL INFARCTION [None]
  - CONVULSION [None]
